FAERS Safety Report 17596025 (Version 1)
Quarter: 2020Q1

REPORT INFORMATION
  Report Type: Spontaneous
  Country: GB (occurrence: GB)
  Receive Date: 20200330
  Receipt Date: 20200330
  Transmission Date: 20200409
  Serious: Yes (Other)
  Sender: FDA-Public Use
  Company Number: GB-TEVA-2020-GB-1212389

PATIENT
  Age: 8 Year
  Sex: Male

DRUGS (3)
  1. MONTELUKAST [Suspect]
     Active Substance: MONTELUKAST SODIUM
     Indication: ASTHMA
     Dosage: 5 MILLIGRAM DAILY; EACH NIGHT, 5 MG
     Route: 048
     Dates: start: 201711, end: 20200228
  2. CLENIL MODULITE [Concomitant]
     Active Substance: BECLOMETHASONE DIPROPIONATE
  3. SALBUTAMOL SULFATE [Concomitant]
     Active Substance: ALBUTEROL SULFATE

REACTIONS (5)
  - Psychomotor skills impaired [Recovering/Resolving]
  - Restlessness [Recovering/Resolving]
  - Anxiety [Recovering/Resolving]
  - Epistaxis [Recovering/Resolving]
  - Emotional disorder [Recovering/Resolving]
